FAERS Safety Report 16317873 (Version 1)
Quarter: 2019Q2

REPORT INFORMATION
  Report Type: Spontaneous
  Country: PL (occurrence: PL)
  Receive Date: 20190516
  Receipt Date: 20190516
  Transmission Date: 20190711
  Serious: Yes (Other)
  Sender: FDA-Public Use
  Company Number: PL-TEVA-2019-PL-1050128

PATIENT
  Age: 39 Year
  Sex: Male
  Weight: 67 kg

DRUGS (4)
  1. DACARBAZINE. [Suspect]
     Active Substance: DACARBAZINE
     Indication: HODGKIN^S DISEASE
     Dosage: 677 (DOSE UNIT UNSPECIFIED)
     Route: 042
     Dates: start: 20160929, end: 20160929
  2. VINBLASTINA [Suspect]
     Active Substance: VINBLASTINE
     Indication: HODGKIN^S DISEASE
     Dosage: 10 (DOSE UNIT UNSPECIFIED)
     Route: 042
     Dates: start: 20160929, end: 20160929
  3. BLEOMICINA [Suspect]
     Active Substance: BLEOMYCIN SULFATE
     Indication: HODGKIN^S DISEASE
     Dosage: 18 (DOSE UNIT UNSPECIFIED)
     Route: 042
     Dates: start: 20160929, end: 20160929
  4. DOXORUBICIN [Suspect]
     Active Substance: DOXORUBICIN
     Indication: HODGKIN^S DISEASE
     Dosage: 45 (DOSE UNIT UNKNOWN)
     Dates: start: 20160929, end: 20160929

REACTIONS (1)
  - Neutropenia [Unknown]

NARRATIVE: CASE EVENT DATE: 20161013
